FAERS Safety Report 18020674 (Version 4)
Quarter: 2020Q3

REPORT INFORMATION
  Report Type: Spontaneous
  Country: FR (occurrence: FR)
  Receive Date: 20200714
  Receipt Date: 20200814
  Transmission Date: 20201103
  Serious: Yes (Death, Other)
  Sender: FDA-Public Use
  Company Number: FR-PFIZER INC-2020267489

PATIENT
  Age: 86 Year
  Sex: Female
  Weight: 50 kg

DRUGS (1)
  1. VYNDAQEL [Suspect]
     Active Substance: TAFAMIDIS MEGLUMINE
     Dosage: 20 MG, DAILY
     Dates: start: 20191009

REACTIONS (5)
  - Cholecystitis [Fatal]
  - Cardiac failure [Fatal]
  - Dyspnoea [Fatal]
  - Cardiac failure chronic [Unknown]
  - Cardiorenal syndrome [Fatal]

NARRATIVE: CASE EVENT DATE: 2020
